FAERS Safety Report 7571561-9 (Version None)
Quarter: 2011Q2

REPORT INFORMATION
  Report Type: 
  Country: None (occurrence: None)
  Receive Date: 20110624
  Receipt Date: 20110622
  Transmission Date: 20111010
  Serious: Yes (Hospitalization, Other)
  Sender: FDA-Public Use
  Company Number: TR-ABBOTT-11P-161-0731154-00

PATIENT
  Age: 70 Year
  Sex: Male
  Weight: 90 kg

DRUGS (2)
  1. UNKNOWN ANTI-HYPERTENSIVE AGENT [Concomitant]
     Indication: HYPERTENSION
  2. TARKA [Suspect]
     Indication: HYPERTENSION
     Route: 048
     Dates: start: 20050101, end: 20110525

REACTIONS (4)
  - BRADYCARDIA [None]
  - VENTRICULAR FIBRILLATION [None]
  - ATRIOVENTRICULAR BLOCK [None]
  - HYPOTENSION [None]
